FAERS Safety Report 7326561-0 (Version None)
Quarter: 2011Q1

REPORT INFORMATION
  Report Type: 
  Country: None (occurrence: None)
  Receive Date: 20110302
  Receipt Date: 20110223
  Transmission Date: 20110831
  Serious: Yes (Life-Threatening, Hospitalization)
  Sender: FDA-Public Use
  Company Number: JP-MERCK-1009USA03647

PATIENT
  Age: 72 Year
  Sex: Female
  Weight: 43 kg

DRUGS (8)
  1. COZAAR [Suspect]
     Indication: HYPERTENSION
     Route: 048
     Dates: start: 20100129, end: 20100201
  2. TAKEPRON [Suspect]
     Indication: GASTRIC ULCER
     Dosage: DOSAGE U DURING A DAY
     Route: 048
     Dates: start: 20091229, end: 20100210
  3. PREDNISOLONE [Concomitant]
     Route: 048
  4. GLOBULIN, IMMUNE [Concomitant]
     Dosage: DOSAGE U DURING DAY
     Route: 042
  5. ALFAROL [Concomitant]
     Route: 048
  6. METHYCOBAL [Concomitant]
     Route: 048
  7. GASMOTIN [Suspect]
     Route: 048
  8. DIART [Concomitant]
     Route: 065

REACTIONS (1)
  - AGRANULOCYTOSIS [None]
